FAERS Safety Report 9729731 (Version 2)
Quarter: 2015Q3

REPORT INFORMATION
  Report Type: Spontaneous
  Country: US (occurrence: US)
  Receive Date: 20131204
  Receipt Date: 20150804
  Transmission Date: 20151125
  Serious: No
  Sender: FDA-Public Use
  Company Number: US-GILEAD-2009-0021892

PATIENT
  Age: 87 Year
  Sex: Female
  Weight: 63.5 kg

DRUGS (15)
  1. PRILOSEC [Concomitant]
     Active Substance: OMEPRAZOLE MAGNESIUM
  2. METOLAZONE. [Concomitant]
     Active Substance: METOLAZONE
  3. DETROL LA [Concomitant]
     Active Substance: TOLTERODINE TARTRATE
  4. FUROSEMIDE. [Concomitant]
     Active Substance: FUROSEMIDE
  5. REVATIO [Concomitant]
     Active Substance: SILDENAFIL CITRATE
  6. MOTRIN [Concomitant]
     Active Substance: IBUPROFEN
  7. FOLIC ACID. [Concomitant]
     Active Substance: FOLIC ACID
  8. LETAIRIS [Suspect]
     Active Substance: AMBRISENTAN
     Indication: PULMONARY ARTERIAL HYPERTENSION
     Route: 048
     Dates: start: 20090506
  9. VYTORIN [Concomitant]
     Active Substance: EZETIMIBE\SIMVASTATIN
  10. POTASSIUM CHLORIDE. [Concomitant]
     Active Substance: POTASSIUM CHLORIDE
  11. LEXAPRO [Concomitant]
     Active Substance: ESCITALOPRAM OXALATE
  12. HYDROXYUREA. [Concomitant]
     Active Substance: HYDROXYUREA
  13. MULTIVITAMIN [Concomitant]
     Active Substance: VITAMINS
  14. VITAMIN B6 [Concomitant]
     Active Substance: PYRIDOXINE HYDROCHLORIDE
  15. SYNTHROID [Concomitant]
     Active Substance: LEVOTHYROXINE SODIUM

REACTIONS (3)
  - Ocular hyperaemia [Not Recovered/Not Resolved]
  - Eye pruritus [Not Recovered/Not Resolved]
  - Eyelid oedema [Not Recovered/Not Resolved]
